FAERS Safety Report 18390760 (Version 2)
Quarter: 2020Q4

REPORT INFORMATION
  Report Type: Spontaneous
  Country: US (occurrence: US)
  Receive Date: 20201016
  Receipt Date: 20201019
  Transmission Date: 20210114
  Serious: Yes (Other)
  Sender: FDA-Public Use
  Company Number: US-AMGEN-USA-20180703259

PATIENT
  Age: 55 Year
  Sex: Female

DRUGS (1)
  1. OTEZLA [Suspect]
     Active Substance: APREMILAST
     Indication: PSORIASIS
     Dosage: 60 MILLIGRAM, BID
     Route: 048
     Dates: start: 20160927

REACTIONS (8)
  - Burning sensation [Unknown]
  - Feeling abnormal [Unknown]
  - Stress [Unknown]
  - Therapy cessation [Unknown]
  - Psoriasis [Unknown]
  - Suicidal ideation [Unknown]
  - Unevaluable event [Unknown]
  - Mental impairment [Unknown]
